FAERS Safety Report 17639548 (Version 1)
Quarter: 2020Q2

REPORT INFORMATION
  Report Type: Spontaneous
  Country: US (occurrence: US)
  Receive Date: 20200407
  Receipt Date: 20200407
  Transmission Date: 20200713
  Serious: No
  Sender: FDA-Public Use
  Company Number: US-TEVA-2020-US-1217477

PATIENT
  Age: 71 Year
  Sex: Male

DRUGS (1)
  1. PROAIR HFA [Suspect]
     Active Substance: ALBUTEROL SULFATE
     Dosage: 2 PUFFS EVERY 4 HOURS AS NEEDED
     Route: 065

REACTIONS (7)
  - Cough [Unknown]
  - Feeling abnormal [Unknown]
  - Device delivery system issue [Unknown]
  - Impaired work ability [Unknown]
  - Dyspnoea [Unknown]
  - Wheezing [Unknown]
  - Device use issue [Unknown]
